FAERS Safety Report 9783640 (Version 1)
Quarter: 2013Q4

REPORT INFORMATION
  Report Type: Spontaneous
  Country: US (occurrence: US)
  Receive Date: 20131226
  Receipt Date: 20131226
  Transmission Date: 20140711
  Serious: No
  Sender: FDA-Public Use
  Company Number: US-PFIZER INC-2013368006

PATIENT
  Age: 63 Year
  Sex: Female

DRUGS (4)
  1. XANAX [Suspect]
     Indication: ANXIETY
     Dosage: 0.5 MG, 3X/DAY
     Route: 048
  2. VIIBRYD [Suspect]
     Indication: DEPRESSION
     Dosage: 10 MG, DAILY
     Route: 048
     Dates: start: 201311, end: 2013
  3. VIIBRYD [Suspect]
     Dosage: 20 MG, DAILY
     Route: 048
     Dates: start: 2013, end: 2013
  4. VIIBRYD [Suspect]
     Dosage: 10 MG, DAILY
     Route: 048
     Dates: start: 2013

REACTIONS (2)
  - Diarrhoea [Recovered/Resolved]
  - Fatigue [Not Recovered/Not Resolved]
